FAERS Safety Report 8835056 (Version 1)
Quarter: 2012Q4

REPORT INFORMATION
  Report Type: Spontaneous
  Country: US (occurrence: None)
  Receive Date: 20120924
  Receipt Date: 20120924
  Transmission Date: 20130627
  Serious: Yes (Other)
  Sender: FDA-Public Use
  Company Number: 2012MZ000378

PATIENT
  Age: 55 Year
  Sex: Female

DRUGS (10)
  1. XEOMIN [Suspect]
     Indication: HEAD TREMOR
  2. XEOMIN [Suspect]
     Indication: OFF LABEL USE
  3. XEOMIN [Suspect]
     Indication: HEAD TREMOR
  4. XEOMIN [Suspect]
     Indication: OFF LABEL USE
  5. PRIMIDONE [Concomitant]
  6. SUMATRIPTAN [Concomitant]
  7. ATORVASTATIN [Concomitant]
  8. LANSOPRAZOLE [Concomitant]
  9. SERTRALINE [Concomitant]
  10. ESTROGENS CONJUGATED [Concomitant]

REACTIONS (5)
  - Encephalitis [None]
  - Rash maculo-papular [None]
  - Arthritis [None]
  - Central nervous system lesion [None]
  - Frontotemporal dementia [None]
